APPROVED DRUG PRODUCT: ISOPAQUE 440
Active Ingredient: CALCIUM METRIZOATE; MEGLUMINE METRIZOATE; METRIZOATE MAGNESIUM; METRIZOATE SODIUM
Strength: 0.78MG/ML;75.9MG/ML;0.15MG/ML;16.6MG/ML
Dosage Form/Route: INJECTABLE;INJECTION
Application: N016847 | Product #001
Applicant: GE HEALTHCARE
Approved: Approved Prior to Jan 1, 1982 | RLD: No | RS: No | Type: DISCN